FAERS Safety Report 6639016-3 (Version None)
Quarter: 2010Q1

REPORT INFORMATION
  Report Type: 
  Country: None (occurrence: None)
  Receive Date: 20100317
  Receipt Date: 20100305
  Transmission Date: 20100710
  Serious: Yes (Hospitalization, Other)
  Sender: FDA-Public Use
  Company Number: FR-PFIZER INC-2010029402

PATIENT
  Age: 32 Year
  Sex: Male

DRUGS (2)
  1. LYRICA [Suspect]
     Indication: CERVICAL ROOT PAIN
     Dosage: UNK
  2. NEURONTIN [Suspect]

REACTIONS (3)
  - FATIGUE [None]
  - ROAD TRAFFIC ACCIDENT [None]
  - SOMNOLENCE [None]
